FAERS Safety Report 8896195 (Version 1)
Quarter: 2012Q4

REPORT INFORMATION
  Report Type: 
  Country: FR (occurrence: FR)
  Receive Date: 20121108
  Receipt Date: 20121108
  Transmission Date: 20130627
  Serious: Yes (Hospitalization)
  Sender: FDA-Public Use
  Company Number: PHHY2012FR102127

PATIENT
  Age: 25 Year
  Sex: Male
  Weight: 55 kg

DRUGS (16)
  1. CERTICAN [Suspect]
     Dosage: 0.5 mg, BID
     Route: 048
  2. ARAVA [Suspect]
     Dosage: 20 mg, at 2 DF daily
     Route: 048
  3. PROGRAF [Suspect]
     Dosage: 0.5 mg, at 0.5 mg twice daily
     Route: 048
  4. PENTACARINAT [Concomitant]
     Dosage: Monthly aerosol
  5. CREON [Concomitant]
     Dosage: 25000 IU, at 8 DF daily
  6. HYDROCORTISONE [Concomitant]
     Dosage: 20 mg daily
  7. ACTONEL [Concomitant]
     Dosage: 35 mg per week
  8. CALTRATE WITH VITAMIN D [Concomitant]
     Dosage: 2 DF daily
  9. NOVORAPID [Concomitant]
     Dosage: 6 IU, TID (3 times daily)
  10. TARDYFERON [Concomitant]
     Dosage: 80 mg, BID (twice daily)
  11. ZITHROMAX [Concomitant]
     Dosage: 250 mg at 2 DF daily
  12. LANTUS [Concomitant]
     Dosage: 18 IU daily
  13. VASTEN [Concomitant]
     Dosage: 40 mg at 1 tablet daily
  14. TRIATEC [Concomitant]
     Dosage: 5 mg at 1 DF daily
  15. PAROXETINE [Concomitant]
     Dosage: 20 at DF daily
  16. VFEND [Concomitant]
     Dosage: 150 at 3 tablets twice daily

REACTIONS (5)
  - Lung disorder [Unknown]
  - Dyspnoea [Unknown]
  - Overdose [Recovered/Resolved]
  - Nephropathy toxic [Recovered/Resolved]
  - Renal failure acute [Recovered/Resolved]
